FAERS Safety Report 11194091 (Version 3)
Quarter: 2015Q3

REPORT INFORMATION
  Report Type: Spontaneous
  Country: GB (occurrence: GB)
  Receive Date: 20150616
  Receipt Date: 20150716
  Transmission Date: 20151125
  Serious: Yes (Disabling)
  Sender: FDA-Public Use
  Company Number: GB-MYLANLABS-2015M1016298

PATIENT

DRUGS (2)
  1. TAMOXIFEN CITRATE. [Suspect]
     Active Substance: TAMOXIFEN CITRATE
     Indication: BREAST CANCER
     Dosage: 20 MG, QD
     Route: 048
     Dates: start: 201106, end: 201505
  2. TAMOXIFEN [Suspect]
     Active Substance: TAMOXIFEN
     Indication: BREAST CANCER
     Dosage: UNK

REACTIONS (7)
  - Nausea [Unknown]
  - Musculoskeletal stiffness [Unknown]
  - Quality of life decreased [Unknown]
  - Malaise [Unknown]
  - Muscle spasms [Recovered/Resolved]
  - Myalgia [Unknown]
  - Rash [Unknown]

NARRATIVE: CASE EVENT DATE: 2011
